FAERS Safety Report 9511945 (Version 2)
Quarter: 2013Q4

REPORT INFORMATION
  Report Type: Report from Study
  Country: JP (occurrence: JP)
  Receive Date: 20130910
  Receipt Date: 20131119
  Transmission Date: 20140711
  Serious: Yes (Hospitalization)
  Sender: FDA-Public Use
  Company Number: JP-AMGEN-JPNCT2013063220

PATIENT
  Age: 75 Year
  Sex: Female
  Weight: 60 kg

DRUGS (24)
  1. DARBEPOETIN ALFA [Suspect]
     Indication: NEPHROGENIC ANAEMIA
     Dosage: 30 MUG, Q4WK
     Route: 058
     Dates: start: 20110524
  2. DARBEPOETIN ALFA [Suspect]
     Dosage: 60 MUG, QD
     Route: 058
     Dates: start: 20110719
  3. DARBEPOETIN ALFA [Suspect]
     Dosage: 120 MUG, Q4WK
     Route: 058
     Dates: start: 20110826
  4. DARBEPOETIN ALFA [Suspect]
     Dosage: 120 MUG, UNK
     Route: 058
     Dates: start: 20111213
  5. DARBEPOETIN ALFA [Suspect]
     Dosage: 60 MUG, UNK
     Route: 058
     Dates: start: 20120821
  6. DARBEPOETIN ALFA [Suspect]
     Dosage: 120 MUG, UNK
     Route: 058
     Dates: start: 20121211
  7. DARBEPOETIN ALFA [Suspect]
     Dosage: 120 MUG, QD
     Route: 058
     Dates: start: 20130219
  8. DARBEPOETIN ALFA [Suspect]
     Dosage: 120 MUG, QD
     Route: 058
     Dates: start: 20130405, end: 20130405
  9. DARBEPOETIN ALFA [Suspect]
     Dosage: 30 MUG, QD
     Route: 058
     Dates: start: 20130430
  10. ADALAT [Concomitant]
     Dosage: UNK
     Route: 048
  11. OMEPRAL [Concomitant]
     Dosage: UNK
     Route: 048
  12. MICARDIS [Concomitant]
     Dosage: UNK
     Route: 048
  13. HALCION [Concomitant]
     Dosage: UNK
     Route: 048
  14. CERCINE [Concomitant]
     Dosage: UNK
     Route: 048
  15. KREMEZIN [Concomitant]
     Dosage: UNK
     Route: 048
  16. JUSO [Concomitant]
     Dosage: UNK
     Route: 048
  17. FERRUM [Concomitant]
     Dosage: UNK
     Route: 048
  18. TAKEPRON [Concomitant]
     Dosage: UNK
     Route: 048
  19. ALFAROL [Concomitant]
     Dosage: UNK
     Route: 048
  20. DOXAZOSIN [Concomitant]
     Dosage: UNK
     Route: 048
  21. METHYCOBAL [Concomitant]
     Dosage: UNK
     Route: 048
  22. CRAVIT [Concomitant]
     Dosage: 250 MG, UNK
     Route: 048
     Dates: start: 20121127
  23. CRAVIT [Concomitant]
     Dosage: UNK
     Route: 048
  24. ADALAT-CR [Concomitant]
     Dosage: UNK
     Route: 048

REACTIONS (2)
  - Muscular weakness [Recovering/Resolving]
  - Renal failure [Recovering/Resolving]
